FAERS Safety Report 4838569-5 (Version None)
Quarter: 2005Q4

REPORT INFORMATION
  Report Type: 
  Country: None (occurrence: None)
  Receive Date: 20051123
  Receipt Date: 20051121
  Transmission Date: 20060501
  Serious: Yes (Other)
  Sender: FDA-Public Use
  Company Number: 218101

PATIENT
  Age: 64 Year
  Sex: Male

DRUGS (7)
  1. RAPTIVA [Suspect]
     Indication: PSORIASIS
     Dosage: 1/WEEK
     Dates: start: 20020101, end: 20051028
  2. LIPITOR [Concomitant]
  3. HYTRIN [Concomitant]
  4. DIOVAN [Concomitant]
  5. PAROXETINE (PAROXETINE HYDROCHLORIDE) [Concomitant]
  6. FLONASE [Concomitant]
  7. VALIUM [Concomitant]

REACTIONS (5)
  - ALANINE AMINOTRANSFERASE INCREASED [None]
  - ASPARTATE AMINOTRANSFERASE INCREASED [None]
  - BLOOD GLUCOSE INCREASED [None]
  - GAMMA-GLUTAMYLTRANSFERASE INCREASED [None]
  - GLYCOSYLATED HAEMOGLOBIN INCREASED [None]
